FAERS Safety Report 14271678 (Version 3)
Quarter: 2019Q1

REPORT INFORMATION
  Report Type: Spontaneous
  Country: US (occurrence: US)
  Receive Date: 20171211
  Receipt Date: 20190206
  Transmission Date: 20190417
  Serious: Yes (Other)
  Sender: FDA-Public Use
  Company Number: US-OTSUKA-2017_004024

PATIENT
  Age: 44 Year
  Sex: Female

DRUGS (11)
  1. OLANZAPINE. [Concomitant]
     Active Substance: OLANZAPINE
     Indication: AGITATION
  2. ABILIFY [Suspect]
     Active Substance: ARIPIPRAZOLE
     Indication: BIPOLAR DISORDER
     Dosage: 5 MG, QD
     Route: 065
     Dates: start: 200908
  3. ABILIFY [Suspect]
     Active Substance: ARIPIPRAZOLE
     Dosage: 10 MG, QD
     Route: 065
  4. HYDROXYZINE [Concomitant]
     Active Substance: HYDROXYZINE HYDROCHLORIDE
     Indication: PRODUCT USED FOR UNKNOWN INDICATION
     Dosage: 25 MG, UNK (PRN)
     Route: 065
  5. LAMOTRIGINE. [Concomitant]
     Active Substance: LAMOTRIGINE
     Indication: PRODUCT USED FOR UNKNOWN INDICATION
     Dosage: 200 MG, QD (AT MORNING)
     Route: 048
  6. ARIPIPRAZOLE. [Concomitant]
     Active Substance: ARIPIPRAZOLE
     Indication: PRODUCT USED FOR UNKNOWN INDICATION
     Dosage: UNK
     Route: 065
     Dates: start: 20151007, end: 20160512
  7. ABILIFY MAINTENA [Suspect]
     Active Substance: ARIPIPRAZOLE
     Indication: BIPOLAR DISORDER
     Dosage: 400 MG, QM
     Route: 030
     Dates: start: 20150818
  8. LORAZEPAM. [Concomitant]
     Active Substance: LORAZEPAM
     Indication: PRODUCT USED FOR UNKNOWN INDICATION
     Dosage: 3 MG, QD
     Route: 048
  9. ABILIFY [Suspect]
     Active Substance: ARIPIPRAZOLE
     Dosage: 15 MG, QD
     Route: 065
     Dates: end: 20160512
  10. OLANZAPINE. [Concomitant]
     Active Substance: OLANZAPINE
     Indication: IRRITABILITY
     Dosage: 5 MG, UNK (PRN)
     Route: 065
  11. OLANZAPINE. [Concomitant]
     Active Substance: OLANZAPINE
     Indication: INSOMNIA

REACTIONS (10)
  - Brain injury [Unknown]
  - Injury [Unknown]
  - Emotional distress [Unknown]
  - Condition aggravated [Recovered/Resolved]
  - Gambling disorder [Recovered/Resolved]
  - Economic problem [Unknown]
  - Mental disorder [Unknown]
  - Eating disorder [Recovered/Resolved]
  - Weight increased [Unknown]
  - Anxiety [Unknown]

NARRATIVE: CASE EVENT DATE: 20160504
